FAERS Safety Report 20810630 (Version 1)
Quarter: 2022Q2

REPORT INFORMATION
  Report Type: Spontaneous
  Country: US (occurrence: US)
  Receive Date: 20220510
  Receipt Date: 20220510
  Transmission Date: 20220721
  Serious: Yes (Other)
  Sender: FDA-Public Use
  Company Number: US-SUNOVION-2022SUN001456

PATIENT
  Sex: Female

DRUGS (1)
  1. APTIOM [Suspect]
     Active Substance: ESLICARBAZEPINE ACETATE
     Dosage: UNK
     Route: 048

REACTIONS (5)
  - Adrenal insufficiency [Unknown]
  - Diabetes mellitus [Unknown]
  - Toxic epidermal necrolysis [Unknown]
  - Skin lesion [Unknown]
  - Leg amputation [Unknown]
